FAERS Safety Report 13953579 (Version 1)
Quarter: 2017Q3

REPORT INFORMATION
  Report Type: Spontaneous
  Country: US (occurrence: US)
  Receive Date: 20170911
  Receipt Date: 20170911
  Transmission Date: 20171128
  Serious: No
  Sender: FDA-Public Use
  Company Number: US-PFIZER INC-2017389418

PATIENT
  Age: 63 Year
  Sex: Female

DRUGS (1)
  1. BOSULIF [Suspect]
     Active Substance: BOSUTINIB MONOHYDRATE
     Indication: MYELOID LEUKAEMIA
     Dosage: 100 MG, 4X/DAY (4 QD)
     Route: 048
     Dates: start: 20170902, end: 20170906

REACTIONS (3)
  - Rash [Unknown]
  - Eye oedema [Unknown]
  - Eye pruritus [Unknown]

NARRATIVE: CASE EVENT DATE: 20170906
